FAERS Safety Report 9055614 (Version 3)
Quarter: 2013Q2

REPORT INFORMATION
  Report Type: Spontaneous
  Country: US (occurrence: US)
  Receive Date: 20130206
  Receipt Date: 20130514
  Transmission Date: 20140414
  Serious: Yes (Other)
  Sender: FDA-Public Use
  Company Number: US-009507513-1301USA013368

PATIENT
  Age: 67 Year
  Sex: Male
  Weight: 99.32 kg

DRUGS (6)
  1. CLARITIN LIQUIGELS [Suspect]
     Indication: OROPHARYNGEAL PAIN
     Dosage: 10 MG, ONCE
     Route: 048
     Dates: start: 20130122
  2. CLARITIN LIQUIGELS [Suspect]
     Indication: RHINORRHOEA
  3. CLARITIN LIQUIGELS [Suspect]
     Indication: MALAISE
  4. METFORMIN [Concomitant]
     Indication: TYPE 2 DIABETES MELLITUS
  5. SIMVASTIN [Concomitant]
     Indication: PRODUCT USED FOR UNKNOWN INDICATION
  6. LISINOPRIL [Concomitant]
     Indication: PRODUCT USED FOR UNKNOWN INDICATION

REACTIONS (4)
  - Deafness [Recovered/Resolved]
  - Sinus congestion [Unknown]
  - Influenza [Unknown]
  - Tinnitus [Not Recovered/Not Resolved]
